FAERS Safety Report 4407377-1 (Version None)
Quarter: 2004Q3

REPORT INFORMATION
  Report Type: 
  Country: None (occurrence: None)
  Receive Date: 20040721
  Receipt Date: 20040708
  Transmission Date: 20050211
  Serious: No
  Sender: FDA-Public Use
  Company Number: SP00303(0)

PATIENT

DRUGS (2)
  1. COLAZAL [Suspect]
     Indication: IRRITABLE BOWEL SYNDROME
  2. ASACOL [Concomitant]

REACTIONS (1)
  - HEPATITIS [None]
